FAERS Safety Report 16208961 (Version 4)
Quarter: 2020Q3

REPORT INFORMATION
  Report Type: Spontaneous
  Country: FR (occurrence: FR)
  Receive Date: 20190417
  Receipt Date: 20190722
  Transmission Date: 20201104
  Serious: Yes (Hospitalization, Other)
  Sender: FDA-Public Use
  Company Number: FR-PFIZER INC-2019156912

PATIENT
  Age: 47 Year
  Sex: Female
  Weight: 70 kg

DRUGS (8)
  1. CABLIVI [Suspect]
     Active Substance: CAPLACIZUMAB-YHDP
     Indication: THROMBOTIC THROMBOCYTOPENIC PURPURA
     Dosage: 10 MG, 1X/DAY
     Route: 058
     Dates: start: 20190226
  2. LANSOPRAZOLE. [Suspect]
     Active Substance: LANSOPRAZOLE
     Indication: PROPHYLAXIS
     Dosage: 15 MG, 1X/DAY
     Route: 048
     Dates: start: 20190226
  3. METHYLPREDNISOLONE SODIUM SUCCINATE. [Suspect]
     Active Substance: METHYLPREDNISOLONE SODIUM SUCCINATE
     Indication: PREMEDICATION
     Dosage: 40 MG, CYCLIC
     Route: 042
     Dates: start: 20190226, end: 20190314
  4. BACTRIM [Suspect]
     Active Substance: SULFAMETHOXAZOLE\TRIMETHOPRIM
     Indication: PROPHYLAXIS
     Dosage: 3 DF, WEEKLY
     Route: 048
     Dates: start: 20190306
  5. LOVENOX [Suspect]
     Active Substance: ENOXAPARIN SODIUM
     Indication: PROPHYLAXIS
     Dosage: UNK UNK, 1X/DAY
     Route: 058
     Dates: start: 20190226, end: 20190308
  6. TRUXIMA [Suspect]
     Active Substance: RITUXIMAB-ABBS
     Indication: THROMBOTIC THROMBOCYTOPENIC PURPURA
     Dosage: 2640 MG, UNK
     Route: 042
     Dates: start: 20190226, end: 20190314
  7. CORTANCYL [Suspect]
     Active Substance: PREDNISONE
     Indication: THROMBOTIC THROMBOCYTOPENIC PURPURA
     Dosage: 35 MG, 1X/DAY
     Route: 048
     Dates: start: 20190226
  8. DIFFU K [Suspect]
     Active Substance: POTASSIUM CHLORIDE
     Indication: MINERAL SUPPLEMENTATION
     Dosage: 1 DF, 1X/DAY
     Route: 048
     Dates: start: 20190226

REACTIONS (1)
  - Deep vein thrombosis [Recovered/Resolved]

NARRATIVE: CASE EVENT DATE: 20190314
